FAERS Safety Report 4796467-X (Version None)
Quarter: 2005Q4

REPORT INFORMATION
  Report Type: 
  Country: None (occurrence: None)
  Receive Date: 20051011
  Receipt Date: 20050421
  Transmission Date: 20060501
  Serious: Yes (Disabling)
  Sender: FDA-Public Use
  Company Number: 2005-04-1484

PATIENT
  Age: 50 Year
  Sex: Male
  Weight: 67.1324 kg

DRUGS (3)
  1. TEMODAR [Suspect]
     Indication: MALIGNANT MELANOMA
     Dosage: 140 MG QD ORAL
     Route: 048
     Dates: start: 20050127, end: 20050418
  2. CELEBREX [Concomitant]
  3. OXYCONTIN [Concomitant]

REACTIONS (2)
  - NAUSEA [None]
  - VOMITING [None]
